FAERS Safety Report 6629323-2 (Version None)
Quarter: 2010Q1

REPORT INFORMATION
  Report Type: 
  Country: None (occurrence: None)
  Receive Date: 20100311
  Receipt Date: 20090803
  Transmission Date: 20100710
  Serious: No
  Sender: FDA-Public Use
  Company Number: US-BIOGENIDEC-2009BI024410

PATIENT
  Age: 36 Year
  Sex: Female

DRUGS (1)
  1. AVONEX [Suspect]
     Indication: MULTIPLE SCLEROSIS
     Route: 030
     Dates: start: 20071107

REACTIONS (6)
  - CYSTITIS [None]
  - FALL [None]
  - HYPOAESTHESIA [None]
  - MULTIPLE SCLEROSIS RELAPSE [None]
  - MUSCLE RIGIDITY [None]
  - MUSCULAR WEAKNESS [None]
